FAERS Safety Report 18035878 (Version 1)
Quarter: 2020Q3

REPORT INFORMATION
  Report Type: Spontaneous
  Country: JP (occurrence: JP)
  Receive Date: 20200717
  Receipt Date: 20200717
  Transmission Date: 20201103
  Serious: Yes (Death, Hospitalization)
  Sender: FDA-Public Use
  Company Number: JP-CHEPLA-C20202097

PATIENT
  Age: 3 Year
  Sex: Male
  Weight: 15.4 kg

DRUGS (49)
  1. PLATELETS [Concomitant]
     Active Substance: HUMAN PLATELET, ALLOGENIC
     Indication: MYELOFIBROSIS
     Dosage: 10 U
     Route: 042
     Dates: start: 20180518, end: 20180518
  2. CEFEPIME HYDROCHLORIDE. [Suspect]
     Active Substance: CEFEPIME HYDROCHLORIDE
     Indication: PRODUCT USED FOR UNKNOWN INDICATION
     Dosage: 1.5G, UNK
     Route: 065
     Dates: start: 20180326, end: 20180402
  3. CEFEPIME HYDROCHLORIDE. [Suspect]
     Active Substance: CEFEPIME HYDROCHLORIDE
     Indication: PRODUCT USED FOR UNKNOWN INDICATION
     Dosage: 2.1G, UNK
     Route: 065
     Dates: start: 20180510, end: 20180518
  4. DENOSINE (GANCICLOVIR) [Suspect]
     Active Substance: GANCICLOVIR
     Indication: PRODUCT USED FOR UNKNOWN INDICATION
     Dosage: 90 MG
     Route: 065
     Dates: start: 20180506, end: 20180613
  5. PIPERACILLIN NA [Concomitant]
     Indication: OPPORTUNISTIC INFECTION PROPHYLAXIS
     Dosage: 3 G
     Route: 065
     Dates: start: 20180518, end: 20180614
  6. PIPERACILLIN NA [Concomitant]
     Indication: OPPORTUNISTIC INFECTION PROPHYLAXIS
     Dosage: 1.8G, UNK
     Route: 065
     Dates: start: 20180302, end: 20180307
  7. DENOSINE (GANCICLOVIR) [Suspect]
     Active Substance: GANCICLOVIR
     Indication: PRODUCT USED FOR UNKNOWN INDICATION
     Dosage: 70 MG
     Route: 065
     Dates: end: 20180322
  8. PLATELETS [Concomitant]
     Active Substance: HUMAN PLATELET, ALLOGENIC
     Indication: MYELOFIBROSIS
     Dosage: 10 U
     Route: 042
     Dates: start: 20180316, end: 20180316
  9. PLATELETS [Concomitant]
     Active Substance: HUMAN PLATELET, ALLOGENIC
     Indication: MYELOFIBROSIS
     Dosage: 10 U
     Route: 042
     Dates: start: 20180424, end: 20180424
  10. JAKAVI [Suspect]
     Active Substance: RUXOLITINIB
     Indication: MYELOFIBROSIS
     Dosage: 20 MG, BID
     Route: 048
     Dates: start: 20180317, end: 20180325
  11. RED BLOOD CELLS, CONCENTRATED [Concomitant]
     Active Substance: HUMAN RED BLOOD CELL
     Indication: MYELOFIBROSIS
     Dosage: 2 U
     Route: 042
     Dates: start: 20180506, end: 20180506
  12. BAKTAR [Concomitant]
     Active Substance: SULFAMETHOXAZOLE\TRIMETHOPRIM
     Indication: OPPORTUNISTIC INFECTION PROPHYLAXIS
     Dosage: UNK, 3 TIMES/WEEK
     Route: 048
     Dates: start: 20180419, end: 20180614
  13. PLATELETS [Concomitant]
     Active Substance: HUMAN PLATELET, ALLOGENIC
     Indication: MYELOFIBROSIS
     Dosage: 10 U
     Route: 042
     Dates: start: 20180507, end: 20180507
  14. CEFEPIME HYDROCHLORIDE. [Suspect]
     Active Substance: CEFEPIME HYDROCHLORIDE
     Indication: PRODUCT USED FOR UNKNOWN INDICATION
     Dosage: 1.35 G, UNK
     Route: 065
     Dates: start: 20180224, end: 20180302
  15. JAKAVI [Suspect]
     Active Substance: RUXOLITINIB
     Indication: MYELOFIBROSIS
     Dosage: 20 MG, BID
     Route: 048
     Dates: start: 20180414, end: 20180416
  16. JAKAVI [Suspect]
     Active Substance: RUXOLITINIB
     Indication: MYELOFIBROSIS
     Dosage: 35 MG (IN TWO DIVIDED DOSES), BID
     Route: 048
     Dates: start: 20180517, end: 20180614
  17. JAKAVI [Suspect]
     Active Substance: RUXOLITINIB
     Indication: MYELOFIBROSIS
     Dosage: 10 MG, BID
     Route: 048
     Dates: start: 20180223, end: 20180227
  18. RED BLOOD CELLS, CONCENTRATED [Concomitant]
     Active Substance: HUMAN RED BLOOD CELL
     Indication: MYELOFIBROSIS
     Dosage: 2 U
     Route: 042
     Dates: start: 20180609, end: 20180609
  19. RED BLOOD CELLS, CONCENTRATED [Concomitant]
     Active Substance: HUMAN RED BLOOD CELL
     Indication: MYELOFIBROSIS
     Dosage: 2 U
     Route: 042
     Dates: start: 20180530, end: 20180530
  20. DENOSINE (GANCICLOVIR) [Suspect]
     Active Substance: GANCICLOVIR
     Indication: PRODUCT USED FOR UNKNOWN INDICATION
     Dosage: 90 MG
     Route: 065
     Dates: start: 20180417, end: 20180419
  21. FUNGUARD [Concomitant]
     Active Substance: MICAFUNGIN SODIUM
     Indication: PRODUCT USED FOR UNKNOWN INDICATION
     Dosage: 40 MG, UNK
     Route: 065
     Dates: start: 20180328, end: 20180402
  22. PIPERACILLIN NA [Concomitant]
     Indication: OPPORTUNISTIC INFECTION PROPHYLAXIS
     Dosage: 1.5 G, UNK
     Route: 065
     Dates: end: 20180224
  23. PLATELETS [Concomitant]
     Active Substance: HUMAN PLATELET, ALLOGENIC
     Indication: MYELOFIBROSIS
     Dosage: 10 U
     Route: 042
     Dates: start: 20180610, end: 20180610
  24. PLATELETS [Concomitant]
     Active Substance: HUMAN PLATELET, ALLOGENIC
     Indication: MYELOFIBROSIS
     Dosage: 10 U
     Route: 042
     Dates: start: 20180524, end: 20180524
  25. PLATELETS [Concomitant]
     Active Substance: HUMAN PLATELET, ALLOGENIC
     Indication: MYELOFIBROSIS
     Dosage: 10 U
     Route: 042
     Dates: start: 20180430, end: 20180430
  26. PLATELETS [Concomitant]
     Active Substance: HUMAN PLATELET, ALLOGENIC
     Indication: MYELOFIBROSIS
     Dosage: 10 U
     Route: 042
     Dates: start: 20180613, end: 20180613
  27. PLATELETS [Concomitant]
     Active Substance: HUMAN PLATELET, ALLOGENIC
     Indication: MYELOFIBROSIS
     Dosage: 10 U
     Route: 042
     Dates: start: 20180402, end: 20180402
  28. JAKAVI [Suspect]
     Active Substance: RUXOLITINIB
     Indication: MYELOFIBROSIS
     Dosage: 15 MG, BID
     Route: 048
     Dates: start: 20180511, end: 20180516
  29. RED BLOOD CELLS, CONCENTRATED [Concomitant]
     Active Substance: HUMAN RED BLOOD CELL
     Indication: MYELOFIBROSIS
     Dosage: 2 U
     Route: 042
     Dates: start: 20180407, end: 20180417
  30. VFEND [Suspect]
     Active Substance: VORICONAZOLE
     Indication: PRODUCT USED FOR UNKNOWN INDICATION
     Dosage: 300 MG
     Route: 065
     Dates: start: 20180515, end: 20180613
  31. VFEND [Suspect]
     Active Substance: VORICONAZOLE
     Indication: PRODUCT USED FOR UNKNOWN INDICATION
     Dosage: 340 MG, UNK
     Route: 065
     Dates: start: 20180514, end: 20180514
  32. DENOSINE (GANCICLOVIR) [Suspect]
     Active Substance: GANCICLOVIR
     Indication: PRODUCT USED FOR UNKNOWN INDICATION
     Dosage: 90 MG
     Route: 065
     Dates: start: 20180423, end: 20180429
  33. PLATELETS [Concomitant]
     Active Substance: HUMAN PLATELET, ALLOGENIC
     Indication: MYELOFIBROSIS
     Dosage: 10 U
     Route: 042
     Dates: start: 20180528, end: 20180528
  34. JAKAVI [Suspect]
     Active Substance: RUXOLITINIB
     Indication: MYELOFIBROSIS
     Dosage: 35 MG (IN TWO DIVIDED DOSES), BID
     Route: 048
     Dates: start: 20180417, end: 20180510
  35. JAKAVI [Suspect]
     Active Substance: RUXOLITINIB
     Indication: MYELOFIBROSIS
     Dosage: 35 MG (IN TWO DIVIDED DOSES), BID
     Route: 048
     Dates: start: 20180309, end: 20180316
  36. VALIXA [Suspect]
     Active Substance: VALGANCICLOVIR
     Indication: PRODUCT USED FOR UNKNOWN INDICATION
     Dosage: 360 MG, UNK
     Route: 048
     Dates: start: 20180323, end: 20180403
  37. RED BLOOD CELLS, CONCENTRATED [Concomitant]
     Active Substance: HUMAN RED BLOOD CELL
     Indication: MYELOFIBROSIS
     Dosage: 2 U
     Route: 042
     Dates: start: 20180614, end: 20180614
  38. DENOSINE (GANCICLOVIR) [Suspect]
     Active Substance: GANCICLOVIR
     Indication: PRODUCT USED FOR UNKNOWN INDICATION
     Dosage: 70 MG
     Route: 065
     Dates: start: 20180328, end: 20180404
  39. PLATELETS [Concomitant]
     Active Substance: HUMAN PLATELET, ALLOGENIC
     Indication: MYELOFIBROSIS
     Dosage: 10 U
     Route: 042
     Dates: start: 20180417, end: 20180417
  40. JAKAVI [Suspect]
     Active Substance: RUXOLITINIB
     Indication: MYELOFIBROSIS
     Dosage: 15 MG, BID
     Route: 048
     Dates: start: 20180228, end: 20180308
  41. RED BLOOD CELLS, CONCENTRATED [Concomitant]
     Active Substance: HUMAN RED BLOOD CELL
     Indication: MYELOFIBROSIS
     Dosage: 2 U
     Route: 042
     Dates: start: 20180510, end: 20180510
  42. RED BLOOD CELLS, CONCENTRATED [Concomitant]
     Active Substance: HUMAN RED BLOOD CELL
     Indication: MYELOFIBROSIS
     Dosage: 2 U
     Route: 042
     Dates: start: 20180319, end: 20180319
  43. VALIXA [Suspect]
     Active Substance: VALGANCICLOVIR
     Indication: PRODUCT USED FOR UNKNOWN INDICATION
     Dosage: 900 MG, UNK
     Route: 048
     Dates: start: 20180404, end: 20180419
  44. PLATELETS [Concomitant]
     Active Substance: HUMAN PLATELET, ALLOGENIC
     Indication: MYELOFIBROSIS
     Dosage: 10 U
     Route: 042
     Dates: start: 20180512, end: 20180512
  45. PLATELETS [Concomitant]
     Active Substance: HUMAN PLATELET, ALLOGENIC
     Indication: MYELOFIBROSIS
     Dosage: 10 U
     Route: 042
     Dates: start: 20180606, end: 20180606
  46. PLATELETS [Concomitant]
     Active Substance: HUMAN PLATELET, ALLOGENIC
     Indication: MYELOFIBROSIS
     Dosage: 10 U
     Route: 042
     Dates: start: 20180601, end: 20180601
  47. JAKAVI [Suspect]
     Active Substance: RUXOLITINIB
     Indication: MYELOFIBROSIS
     Dosage: 45 MG (IN TWO DIVIDED DOSES), BID
     Route: 048
     Dates: start: 20180326, end: 20180413
  48. BAKTAR [Concomitant]
     Active Substance: SULFAMETHOXAZOLE\TRIMETHOPRIM
     Indication: OPPORTUNISTIC INFECTION PROPHYLAXIS
     Dosage: UNK, 3 TIMES/WEEK
     Route: 048
     Dates: end: 20180418
  49. VALIXA [Suspect]
     Active Substance: VALGANCICLOVIR
     Indication: PRODUCT USED FOR UNKNOWN INDICATION
     Dosage: 1350MG, UNK
     Route: 048
     Dates: start: 20180420, end: 20180507

REACTIONS (10)
  - Platelet count decreased [Not Recovered/Not Resolved]
  - Hepatic enzyme increased [Not Recovered/Not Resolved]
  - Purpura [Not Recovered/Not Resolved]
  - White blood cell count decreased [Recovering/Resolving]
  - Malignant neoplasm progression [Fatal]
  - White blood cell count increased [Not Recovered/Not Resolved]
  - Acute biphenotypic leukaemia [Fatal]
  - Pneumonia [Not Recovered/Not Resolved]
  - Product use issue [Unknown]
  - Cytomegalovirus infection reactivation [Not Recovered/Not Resolved]

NARRATIVE: CASE EVENT DATE: 20180316
